FAERS Safety Report 5864198-0 (Version None)
Quarter: 2008Q3

REPORT INFORMATION
  Report Type: 
  Country: None (occurrence: None)
  Receive Date: 20080829
  Receipt Date: 20080818
  Transmission Date: 20090109
  Serious: Yes (Hospitalization)
  Sender: FDA-Public Use
  Company Number: PL-ROCHE-582323

PATIENT
  Age: 64 Year
  Sex: Male

DRUGS (2)
  1. CEFTRIAXONE SODIUM [Suspect]
     Indication: CARDIAC TAMPONADE
     Route: 042
  2. METHYLPREDNISOLONE 16MG TAB [Suspect]
     Indication: CARDIAC TAMPONADE
     Route: 042

REACTIONS (2)
  - DYSPNOEA AT REST [None]
  - PERICARDIAL EFFUSION [None]
